FAERS Safety Report 21557950 (Version 1)
Quarter: 2022Q4

REPORT INFORMATION
  Report Type: Spontaneous
  Country: DE (occurrence: DE)
  Receive Date: 20221106
  Receipt Date: 20221106
  Transmission Date: 20230113
  Serious: Yes (Hospitalization)
  Sender: FDA-Public Use
  Company Number: DE-ADRED-08444-01

PATIENT
  Age: 80 Year
  Sex: Female
  Weight: 65 kg

DRUGS (15)
  1. ALLOPURINOL [Suspect]
     Active Substance: ALLOPURINOL
     Indication: Product used for unknown indication
     Dosage: 300 MG, 0.5-0-0-0, TABLETTEN
     Route: 048
  2. DALTEPARIN [Suspect]
     Active Substance: DALTEPARIN
     Indication: Product used for unknown indication
     Dosage: 5000 IE, 1-0-1-0, INJEKTIONS-/INFUSIONSL?SUNG INJECTION/INFUSION SOLUTION
     Route: 058
  3. CANDESARTAN [Suspect]
     Active Substance: CANDESARTAN
     Indication: Product used for unknown indication
     Dosage: 32 MG, 0-0-0.5-0, TABLETTEN
     Route: 048
  4. TORSEMIDE [Suspect]
     Active Substance: TORSEMIDE
     Indication: Product used for unknown indication
     Dosage: 20 MG, 2-1-0-0, TABLETTEN
     Route: 048
  5. ASPIRIN [Suspect]
     Active Substance: ASPIRIN
     Indication: Product used for unknown indication
     Dosage: 100 MG, 1-0-0-0, TABLETTEN
     Route: 048
  6. CHLORTHALIDONE [Suspect]
     Active Substance: CHLORTHALIDONE
     Indication: Product used for unknown indication
     Dosage: 25 MG, 0.5-0-0-0, TABLETTEN
     Route: 048
  7. Eisen(II) [Concomitant]
     Indication: Product used for unknown indication
     Dosage: 50 MG, 1-0-0-0, KAPSELN
     Route: 048
  8. BISOPROLOL [Concomitant]
     Active Substance: BISOPROLOL
     Indication: Product used for unknown indication
     Dosage: 5 MG, 0-0-1-0, TABLETTEN
     Route: 048
  9. INSULIN HUMAN [Concomitant]
     Active Substance: INSULIN HUMAN
     Indication: Product used for unknown indication
     Dosage: 1 IE, NACH BEDARF, FERTIGSPRITZEN, AS REQUIRED, PRE-FILLED SYRINGES
     Route: 058
  10. INSULIN LISPRO [Concomitant]
     Active Substance: INSULIN LISPRO
     Indication: Product used for unknown indication
     Dosage: 1 IE, NACH BEDARF, INJEKTIONS-/INFUSIONSL?SUNG
     Route: 058
  11. POLYETHYLENE GLYCOLS [Concomitant]
     Active Substance: POLYETHYLENE GLYCOLS
     Indication: Product used for unknown indication
     Dosage: 13.125 G, 1-0-0-0, PULVER
     Route: 048
  12. INSULIN GLARGINE [Concomitant]
     Active Substance: INSULIN GLARGINE
     Indication: Product used for unknown indication
     Dosage: 1 IE, NACH BEDARF, FERTIGSPRITZEN AS REQUIRED, PRE-FILLED SYRINGES
     Route: 058
  13. FENTANYL [Concomitant]
     Active Substance: FENTANYL
     Indication: Product used for unknown indication
     Dosage: 0.025 MG/H, NACH SCHEMA, PFLASTER TRANSDERMAL
     Route: 062
  14. DIGOXIN [Concomitant]
     Active Substance: DIGOXIN
     Indication: Product used for unknown indication
     Dosage: 0.25 MG, NACH SCHEMA, TABLETTEN
     Route: 048
  15. CHOLECALCIFEROL [Concomitant]
     Active Substance: CHOLECALCIFEROL
     Indication: Product used for unknown indication
     Dosage: 1000 IE, 1-0-0-0, TABLETTEN
     Route: 048

REACTIONS (5)
  - Dyspnoea [Unknown]
  - Cardiac failure [Unknown]
  - Acute kidney injury [Unknown]
  - Anaemia [Unknown]
  - Renal impairment [Unknown]
